FAERS Safety Report 14931327 (Version 5)
Quarter: 2021Q4

REPORT INFORMATION
  Report Type: Spontaneous
  Country: US (occurrence: US)
  Receive Date: 20180524
  Receipt Date: 20211214
  Transmission Date: 20220303
  Serious: Yes (Hospitalization)
  Sender: FDA-Public Use
  Company Number: US-ELI_LILLY_AND_COMPANY-US201805010669

PATIENT
  Sex: Female

DRUGS (24)
  1. HUMULIN N [Suspect]
     Active Substance: INSULIN HUMAN
     Indication: Type 1 diabetes mellitus
     Dosage: UNK UNK, UNKNOWN
     Route: 058
     Dates: start: 201802
  2. HUMULIN N [Suspect]
     Active Substance: INSULIN HUMAN
     Indication: Type 1 diabetes mellitus
     Dosage: UNK UNK, UNKNOWN
     Route: 058
     Dates: start: 201802
  3. HUMULIN N [Suspect]
     Active Substance: INSULIN HUMAN
     Indication: Type 1 diabetes mellitus
     Dosage: UNK UNK, UNKNOWN
     Route: 058
     Dates: start: 201802
  4. HUMULIN N [Suspect]
     Active Substance: INSULIN HUMAN
     Indication: Type 1 diabetes mellitus
     Dosage: UNK UNK, UNKNOWN
     Route: 058
     Dates: start: 201802
  5. HUMULIN N [Suspect]
     Active Substance: INSULIN HUMAN
     Indication: Type 1 diabetes mellitus
     Dosage: UNK UNK, UNKNOWN
     Route: 058
     Dates: start: 201802
  6. HUMULIN N [Suspect]
     Active Substance: INSULIN HUMAN
     Dosage: 12 U, BID
     Route: 058
  7. HUMULIN N [Suspect]
     Active Substance: INSULIN HUMAN
     Dosage: 12 U, BID
     Route: 058
  8. HUMULIN N [Suspect]
     Active Substance: INSULIN HUMAN
     Dosage: 12 U, BID
     Route: 058
  9. HUMULIN N [Suspect]
     Active Substance: INSULIN HUMAN
     Dosage: 12 U, BID
     Route: 058
  10. HUMULIN N [Suspect]
     Active Substance: INSULIN HUMAN
     Dosage: 12 U, BID
     Route: 058
  11. HUMULIN N [Suspect]
     Active Substance: INSULIN HUMAN
     Dosage: 12 U, BID
     Route: 058
  12. HUMULIN N [Suspect]
     Active Substance: INSULIN HUMAN
     Dosage: 12 U, BID
     Route: 058
  13. HUMULIN N [Suspect]
     Active Substance: INSULIN HUMAN
     Dosage: 12 U, BID
     Route: 058
  14. HUMULIN N [Suspect]
     Active Substance: INSULIN HUMAN
     Dosage: 12 U, BID
     Route: 058
  15. HUMULIN N [Suspect]
     Active Substance: INSULIN HUMAN
     Dosage: UNK
     Route: 065
  16. HUMULIN N [Suspect]
     Active Substance: INSULIN HUMAN
     Dosage: UNK
     Route: 065
  17. HUMULIN N [Suspect]
     Active Substance: INSULIN HUMAN
     Dosage: UNK
     Route: 065
  18. HUMULIN N [Suspect]
     Active Substance: INSULIN HUMAN
     Dosage: UNK
     Route: 065
  19. HUMULIN N [Suspect]
     Active Substance: INSULIN HUMAN
     Dosage: UNK
     Route: 065
  20. HUMALOG [Suspect]
     Active Substance: INSULIN LISPRO
     Indication: Type 1 diabetes mellitus
     Dosage: 7 U, EACH MORNING
     Route: 058
  21. HUMALOG [Suspect]
     Active Substance: INSULIN LISPRO
     Indication: Type 1 diabetes mellitus
     Dosage: UNK UNK, UNKNOWN
     Route: 065
     Dates: start: 2016
  22. HUMALOG [Suspect]
     Active Substance: INSULIN LISPRO
     Indication: Type 1 diabetes mellitus
     Dosage: UNK UNK, UNKNOWN
     Route: 065
     Dates: start: 2016
  23. HUMALOG [Suspect]
     Active Substance: INSULIN LISPRO
     Dosage: UNK
     Route: 065
  24. HUMALOG [Suspect]
     Active Substance: INSULIN LISPRO
     Dosage: UNK
     Route: 065

REACTIONS (2)
  - Diabetes mellitus inadequate control [Unknown]
  - Blood glucose increased [Recovered/Resolved]
